FAERS Safety Report 15061774 (Version 2)
Quarter: 2019Q1

REPORT INFORMATION
  Report Type: Report from Study
  Country: GB (occurrence: GB)
  Receive Date: 20180625
  Receipt Date: 20190123
  Transmission Date: 20190417
  Serious: Yes (Death, Hospitalization, Other)
  Sender: FDA-Public Use
  Company Number: GB-ROCHE-1663334

PATIENT
  Sex: Male

DRUGS (2)
  1. ATENOLOL. [Concomitant]
     Active Substance: ATENOLOL
  2. ESBRIET [Suspect]
     Active Substance: PIRFENIDONE
     Indication: IDIOPATHIC PULMONARY FIBROSIS
     Route: 048
     Dates: start: 20150323

REACTIONS (19)
  - Catheter site pain [Unknown]
  - Ill-defined disorder [Unknown]
  - Bone swelling [Unknown]
  - Angina pectoris [Fatal]
  - Nausea [Recovering/Resolving]
  - Jaundice [Unknown]
  - Bile duct obstruction [Unknown]
  - Cholelithiasis [Unknown]
  - Blood potassium increased [Unknown]
  - Transient ischaemic attack [Unknown]
  - Speech disorder [Unknown]
  - Dyspnoea [Unknown]
  - Dysgeusia [Unknown]
  - Urine output decreased [Unknown]
  - Mood altered [Unknown]
  - Coeliac disease [Unknown]
  - Purulent discharge [Unknown]
  - Malaise [Unknown]
  - Decreased appetite [Not Recovered/Not Resolved]

NARRATIVE: CASE EVENT DATE: 201512
